FAERS Safety Report 9439271 (Version 3)
Quarter: 2014Q2

REPORT INFORMATION
  Report Type: Report from Study
  Country: BR (occurrence: BR)
  Receive Date: 20130804
  Receipt Date: 20140530
  Transmission Date: 20141212
  Serious: Yes (Hospitalization)
  Sender: FDA-Public Use
  Company Number: BR-ROCHE-1255717

PATIENT
  Sex: Female
  Weight: 65 kg

DRUGS (5)
  1. MABTHERA [Suspect]
     Indication: RHEUMATOID ARTHRITIS
     Route: 065
     Dates: start: 20110430
  2. ARAVA [Concomitant]
  3. PRELONE [Concomitant]
     Route: 065
  4. ENDOFOLIN [Concomitant]
  5. METHOTREXATE [Concomitant]

REACTIONS (5)
  - Foot operation [Unknown]
  - Foot deformity [Not Recovered/Not Resolved]
  - Localised infection [Not Recovered/Not Resolved]
  - Impaired healing [Unknown]
  - Infection [Unknown]
